FAERS Safety Report 4656169-7 (Version None)
Quarter: 2005Q2

REPORT INFORMATION
  Report Type: 
  Country: None (occurrence: None)
  Receive Date: 20050509
  Receipt Date: 20031003
  Transmission Date: 20051028
  Serious: Yes (Hospitalization)
  Sender: FDA-Public Use
  Company Number: GB-BRISTOL-MYERS SQUIBB COMPANY-12402897

PATIENT
  Age: 72 Year
  Sex: Female

DRUGS (4)
  1. KENALOG-40 [Suspect]
     Indication: BACK PAIN
     Dosage: ROUTE OF ADMINISTRATION:  ALSO REPORTED AS INTRAVENOUS.
     Route: 008
     Dates: start: 20030930, end: 20030930
  2. KENALOG-40 [Suspect]
     Indication: SCIATICA
     Dosage: ROUTE OF ADMINISTRATION:  ALSO REPORTED AS INTRAVENOUS.
     Route: 008
     Dates: start: 20030930, end: 20030930
  3. MARCAINE [Suspect]
     Indication: BACK PAIN
     Route: 008
     Dates: start: 20030930
  4. MARCAINE [Suspect]
     Indication: SCIATICA
     Route: 008
     Dates: start: 20030930

REACTIONS (1)
  - SENSORIMOTOR DISORDER [None]
